FAERS Safety Report 24884747 (Version 1)
Quarter: 2025Q1

REPORT INFORMATION
  Report Type: Spontaneous
  Country: US (occurrence: US)
  Receive Date: 20250124
  Receipt Date: 20250124
  Transmission Date: 20250409
  Serious: No
  Sender: PFIZER
  Company Number: US-PFIZER INC-202400333487

PATIENT
  Age: 73 Year
  Sex: Female
  Weight: 121.5 kg

DRUGS (11)
  1. XELJANZ XR [Suspect]
     Active Substance: TOFACITINIB CITRATE
     Indication: Rheumatoid arthritis
     Dosage: 11 MG, 1X/DAY
     Route: 048
     Dates: start: 20240801
  2. FOLIC ACID [Concomitant]
     Active Substance: FOLIC ACID
     Dosage: 1 MG (400 MCG TABLETS - TAKING 2.5 MG DAILY)
  3. BIOFREEZE [Concomitant]
     Active Substance: MENTHOL
  4. TYLENOL [Concomitant]
     Active Substance: ACETAMINOPHEN
     Dates: start: 20191211
  5. VITAMIN D NOS [Concomitant]
     Active Substance: CHOLECALCIFEROL\ERGOCALCIFEROL
     Dosage: 2000 UNITS EVERY DAY. TAKE WITH THE BIGGEST MEAL OF THE DAY FOR BEST ABSORPTION.
  6. VITAMIN B COMPLEX [Concomitant]
     Active Substance: CYANOCOBALAMIN\DEXPANTHENOL\NIACINAMIDE\PYRIDOXINE HYDROCHLORIDE\RIBOFLAVIN 5^-PHOSPHATE SODIUM\THIA
     Dosage: UNK, DAILY
  7. NORVASC [Concomitant]
     Active Substance: AMLODIPINE BESYLATE
     Dosage: 10 MG, 1X/DAY
     Route: 048
     Dates: start: 20231127, end: 20241219
  8. COREG [Concomitant]
     Active Substance: CARVEDILOL
     Dosage: TAKE 1.5 TABLETS (9.375 MG TOTAL) BY MOUTP 2 (TWO) TIMES DAILY WITH MEALS
     Route: 048
     Dates: start: 20240624, end: 20241219
  9. SYNTHROID [Concomitant]
     Active Substance: LEVOTHYROXINE SODIUM
     Dosage: TAKE 1 TABLET 125 MCG TOTAL EVERY DAY TO BE TAKEN ON AN EMPTY STOMACH 30 MINUTES BEFORE EATING
     Route: 048
     Dates: start: 20240624, end: 20241219
  10. COZAAR [Concomitant]
     Active Substance: LOSARTAN POTASSIUM
     Dosage: 50 MG, 1X/DAY
     Route: 048
     Dates: start: 20240624, end: 20241219
  11. BOTOX [Concomitant]
     Active Substance: ONABOTULINUMTOXINA
     Indication: Lid lag
     Dosage: ONE TIME, KEEP IN REFRIGERATOR.
     Route: 023
     Dates: start: 20231214, end: 20231214

REACTIONS (7)
  - Limb injury [Recovering/Resolving]
  - Contusion [Recovering/Resolving]
  - Blood glucose increased [Unknown]
  - Blood sodium decreased [Unknown]
  - Blood potassium increased [Unknown]
  - Carbon dioxide increased [Unknown]
  - C-reactive protein increased [Unknown]

NARRATIVE: CASE EVENT DATE: 20240101
